FAERS Safety Report 25055724 (Version 2)
Quarter: 2025Q2

REPORT INFORMATION
  Report Type: Spontaneous
  Country: US (occurrence: US)
  Receive Date: 20250309
  Receipt Date: 20250510
  Transmission Date: 20250716
  Serious: No
  Sender: SANOFI AVENTIS
  Company Number: US-SA-2025SA068652

PATIENT
  Age: 65 Year
  Sex: Female

DRUGS (2)
  1. DUPIXENT [Suspect]
     Active Substance: DUPILUMAB
     Indication: Nasal polyps
     Dosage: 300 MG, QOW
     Route: 058
     Dates: start: 202502
  2. CLARITIN [Suspect]
     Active Substance: LORATADINE
     Route: 065

REACTIONS (3)
  - Infection [Unknown]
  - Injection site pain [Unknown]
  - Sinus operation [Unknown]

NARRATIVE: CASE EVENT DATE: 20250101
